FAERS Safety Report 8336912-6 (Version None)
Quarter: 2012Q2

REPORT INFORMATION
  Report Type: 
  Country: None (occurrence: None)
  Receive Date: 20120504
  Receipt Date: 20120424
  Transmission Date: 20120825
  Serious: Yes (Hospitalization, Other)
  Sender: FDA-Public Use
  Company Number: US-SANOFI-AVENTIS-2012SA028013

PATIENT
  Age: 65 Year
  Sex: Female

DRUGS (8)
  1. NIACIN [Concomitant]
  2. FISH OIL [Concomitant]
  3. OMEPRAZOLE [Concomitant]
  4. COUMADIN [Concomitant]
  5. HYDROCHLOROTHIAZIDE/LOSARTAN POTASSIUM [Concomitant]
  6. THYROID TAB [Concomitant]
  7. MULTAQ [Suspect]
     Indication: ATRIAL FIBRILLATION
     Route: 048
     Dates: start: 20111019, end: 20120419
  8. VITAMIN D [Concomitant]

REACTIONS (3)
  - CHEST PAIN [None]
  - ATRIAL FIBRILLATION [None]
  - TENDON OPERATION [None]
